FAERS Safety Report 11572854 (Version 1)
Quarter: 2015Q3

REPORT INFORMATION
  Report Type: Spontaneous
  Country: BR (occurrence: BR)
  Receive Date: 20150929
  Receipt Date: 20150929
  Transmission Date: 20151125
  Serious: Yes (Other)
  Sender: FDA-Public Use
  Company Number: BR-JNJFOC-20141209248

PATIENT
  Age: 45 Year
  Sex: Female
  Weight: 65 kg

DRUGS (4)
  1. STELARA [Suspect]
     Active Substance: USTEKINUMAB
     Indication: PSORIASIS
     Route: 058
     Dates: start: 201403
  2. SUMATRIPTAN. [Concomitant]
     Active Substance: SUMATRIPTAN
     Indication: HEADACHE
     Route: 065
     Dates: start: 20141123
  3. LEXAPRO [Concomitant]
     Active Substance: ESCITALOPRAM OXALATE
     Indication: ANXIETY
     Route: 065
     Dates: start: 201408
  4. DEPAKOTE [Concomitant]
     Active Substance: DIVALPROEX SODIUM
     Indication: HEADACHE
     Route: 065

REACTIONS (6)
  - Influenza [Unknown]
  - Decreased immune responsiveness [Not Recovered/Not Resolved]
  - Candida infection [Unknown]
  - Feeling hot [Not Recovered/Not Resolved]
  - Onychoclasis [Unknown]
  - Arthralgia [Unknown]

NARRATIVE: CASE EVENT DATE: 201403
